FAERS Safety Report 6635625-6 (Version None)
Quarter: 2010Q1

REPORT INFORMATION
  Report Type: 
  Country: None (occurrence: None)
  Receive Date: 20100315
  Receipt Date: 20100308
  Transmission Date: 20100710
  Serious: Yes (Hospitalization)
  Sender: FDA-Public Use
  Company Number: US-AMGEN-ICO256626

PATIENT
  Sex: Male

DRUGS (19)
  1. DARBEPOETIN ALFA [Suspect]
     Indication: RENAL FAILURE CHRONIC
     Route: 058
     Dates: start: 20041019
  2. AVANDIA [Concomitant]
     Route: 048
     Dates: start: 20030301
  3. GLYBURIDE [Concomitant]
     Route: 048
     Dates: start: 20060815
  4. AGGRENOX [Concomitant]
     Route: 048
     Dates: start: 20060718
  5. FUROSEMIDE [Concomitant]
     Route: 048
     Dates: start: 20061204
  6. FOLIC ACID [Concomitant]
     Route: 048
     Dates: start: 20061223
  7. VITAMIN B-12 [Concomitant]
     Route: 048
     Dates: start: 20061223
  8. LISINOPRIL [Concomitant]
     Route: 048
     Dates: start: 20070306
  9. CARBIDOPA-LEVODOPA [Concomitant]
     Route: 048
     Dates: start: 20000721
  10. DULCOLAX [Concomitant]
     Route: 048
     Dates: start: 20070425
  11. LOVAZA [Concomitant]
     Route: 048
     Dates: start: 20070512
  12. NIFEREX [Concomitant]
     Route: 048
     Dates: start: 20071023
  13. ACETAMINOPHEN [Concomitant]
     Route: 048
     Dates: start: 20060628
  14. MAGNESIUM [Concomitant]
     Route: 048
     Dates: start: 20070306
  15. VITAMIN B6 [Concomitant]
     Route: 048
     Dates: start: 20070306
  16. ISOSORBIDE MONONITRATE [Concomitant]
     Route: 048
     Dates: start: 20030220
  17. BICITRA [Concomitant]
     Route: 048
     Dates: start: 20060815
  18. SEROQUEL [Concomitant]
     Route: 048
     Dates: start: 20050920
  19. LIPITOR [Concomitant]
     Route: 048
     Dates: start: 20070307

REACTIONS (2)
  - ANAEMIA [None]
  - CARDIAC FAILURE CONGESTIVE [None]
